FAERS Safety Report 18470726 (Version 2)
Quarter: 2022Q4

REPORT INFORMATION
  Report Type: Other
  Country: JP (occurrence: JP)
  Receive Date: 20201105
  Receipt Date: 20221220
  Transmission Date: 20230112
  Serious: Yes (Other)
  Sender: FDA-Public Use
  Company Number: JP-CHUGAI-A2020046940ROCHE

PATIENT
  Age: 81 Year
  Sex: Male
  Weight: 64 kg

DRUGS (14)
  1. OBINUTUZUMAB [Suspect]
     Active Substance: OBINUTUZUMAB
     Indication: Follicular lymphoma
     Dosage: 1000MG,ONCE IN1DAY
     Route: 041
     Dates: start: 20200408, end: 20200408
  2. OBINUTUZUMAB [Suspect]
     Active Substance: OBINUTUZUMAB
     Dosage: 1000MG,ONCE IN1DAY
     Route: 041
     Dates: start: 20200415, end: 20200415
  3. OBINUTUZUMAB [Suspect]
     Active Substance: OBINUTUZUMAB
     Dosage: 1000MG,ONCE IN1DAY
     Route: 041
     Dates: start: 20200422, end: 20200422
  4. OBINUTUZUMAB [Suspect]
     Active Substance: OBINUTUZUMAB
     Dosage: 1000MG,ONCE IN1DAY
     Route: 041
     Dates: start: 20200513, end: 20200513
  5. OBINUTUZUMAB [Suspect]
     Active Substance: OBINUTUZUMAB
     Dosage: 1000MG,ONCE IN1DAY
     Route: 041
     Dates: start: 20200612, end: 20200612
  6. OBINUTUZUMAB [Suspect]
     Active Substance: OBINUTUZUMAB
     Dosage: 1000MG,ONCE IN1DAY
     Route: 041
     Dates: start: 20200710, end: 20200710
  7. OBINUTUZUMAB [Suspect]
     Active Substance: OBINUTUZUMAB
     Dosage: 1000MG,ONCE IN1DAY
     Route: 041
     Dates: start: 20200807, end: 20200807
  8. OBINUTUZUMAB [Suspect]
     Active Substance: OBINUTUZUMAB
     Dosage: 1000MG,ONCE IN1DAY
     Route: 041
     Dates: start: 20200909, end: 20200909
  9. OBINUTUZUMAB [Suspect]
     Active Substance: OBINUTUZUMAB
     Dosage: 1000 MILLIGRAM, QD
     Route: 041
     Dates: start: 20201113, end: 20201113
  10. OBINUTUZUMAB [Suspect]
     Active Substance: OBINUTUZUMAB
     Dosage: 1000 MILLIGRAM, QD
     Route: 041
     Dates: start: 20210115, end: 20210115
  11. OBINUTUZUMAB [Suspect]
     Active Substance: OBINUTUZUMAB
     Dosage: 1000 MILLIGRAM, QD
     Route: 041
     Dates: start: 20210423, end: 20210423
  12. OBINUTUZUMAB [Suspect]
     Active Substance: OBINUTUZUMAB
     Dosage: 1000 MILLIGRAM, QD
     Route: 041
     Dates: start: 20210618, end: 20210618
  13. OBINUTUZUMAB [Suspect]
     Active Substance: OBINUTUZUMAB
     Dosage: MOST RECENT DOSE : 13/AUG/2021
     Route: 041
     Dates: start: 20210813
  14. BENDAMUSTINE HYDROCHLORIDE [Concomitant]
     Active Substance: BENDAMUSTINE HYDROCHLORIDE
     Indication: Follicular lymphoma
     Route: 041
     Dates: start: 20200409, end: 20200910

REACTIONS (2)
  - Myelosuppression [Unknown]
  - Infusion related reaction [Unknown]
